FAERS Safety Report 5551073-4 (Version None)
Quarter: 2007Q4

REPORT INFORMATION
  Report Type: 
  Country: None (occurrence: None)
  Receive Date: 20071212
  Receipt Date: 20071210
  Transmission Date: 20080405
  Serious: Yes (Death, Hospitalization, Other)
  Sender: FDA-Public Use
  Company Number: US-BRISTOL-MYERS SQUIBB COMPANY-13950944

PATIENT
  Age: 41 Year
  Sex: Female

DRUGS (19)
  1. DASATINIB [Suspect]
     Indication: COLORECTAL CANCER METASTATIC
     Route: 048
     Dates: start: 20070808, end: 20071005
  2. CETUXIMAB [Suspect]
     Indication: COLORECTAL CANCER METASTATIC
     Route: 042
     Dates: start: 20070808, end: 20071005
  3. OXALIPLATIN [Suspect]
     Indication: COLORECTAL CANCER METASTATIC
     Route: 042
     Dates: start: 20070808, end: 20071005
  4. LEUCOVORIN CALCIUM [Suspect]
     Indication: COLORECTAL CANCER METASTATIC
     Route: 042
     Dates: start: 20070808, end: 20071005
  5. FLUOROURACIL [Suspect]
     Indication: COLORECTAL CANCER METASTATIC
     Dosage: 400MG/M2 ON DAY 1; 2400MG/M2 OVER 46 HOURS
     Route: 042
     Dates: start: 20070808, end: 20071005
  6. AMBIEN [Concomitant]
     Indication: INSOMNIA
     Route: 048
     Dates: end: 20071008
  7. BONIVA [Concomitant]
     Indication: OSTEOPOROSIS
     Route: 048
  8. DEXAMETHASONE TAB [Concomitant]
     Route: 048
  9. LEVOTHYROXINE SODIUM [Concomitant]
     Indication: HYPOTHYROIDISM
     Route: 048
     Dates: end: 20071008
  10. MAGNESIUM [Concomitant]
     Indication: HYPOMAGNESAEMIA
     Route: 042
     Dates: end: 20071008
  11. METOCLOPRAMIDE HCL [Concomitant]
     Indication: NAUSEA
     Dosage: MAY ALSO TAKE EVERY 4 HOURS N V
     Route: 048
  12. NEXIUM [Concomitant]
     Indication: ANTACID THERAPY
     Route: 048
     Dates: end: 20071008
  13. OXYCODONE HCL [Concomitant]
     Indication: PAIN
     Dosage: 3 TABLETS OF 40 MG EVERY 12HOURS
     Route: 048
     Dates: end: 20071009
  14. PAXIL [Concomitant]
     Route: 048
     Dates: end: 20071008
  15. PHENERGAN HCL [Concomitant]
     Indication: VOMITING
     Route: 048
     Dates: end: 20071008
  16. SENOKOT [Concomitant]
     Indication: CONSTIPATION
     Dosage: 1DF=1 TABLET
     Route: 048
  17. XANAX [Concomitant]
     Indication: ANXIETY
     Route: 048
     Dates: end: 20071008
  18. ZOFRAN [Concomitant]
     Indication: VOMITING
     Route: 048
  19. VALACYCLOVIR HCL [Concomitant]

REACTIONS (5)
  - ASPARTATE AMINOTRANSFERASE INCREASED [None]
  - BLOOD ALKALINE PHOSPHATASE INCREASED [None]
  - CHOLECYSTITIS [None]
  - HYPERBILIRUBINAEMIA [None]
  - MALIGNANT NEOPLASM PROGRESSION [None]
